FAERS Safety Report 16417095 (Version 2)
Quarter: 2019Q2

REPORT INFORMATION
  Report Type: Spontaneous
  Country: US (occurrence: US)
  Receive Date: 20190611
  Receipt Date: 20190618
  Transmission Date: 20190711
  Serious: No
  Sender: FDA-Public Use
  Company Number: US-BIOGEN-2019BI00706088

PATIENT
  Sex: Female

DRUGS (6)
  1. TECFIDERA [Suspect]
     Active Substance: DIMETHYL FUMARATE
     Dosage: STARTED AFTER TAKING THE 120 MG DOSE FOR 7 DAYS
     Route: 048
     Dates: start: 20190227
  2. TECFIDERA [Suspect]
     Active Substance: DIMETHYL FUMARATE
     Route: 048
     Dates: start: 20190306
  3. TECFIDERA [Suspect]
     Active Substance: DIMETHYL FUMARATE
     Dosage: STARTED AROUND THE END OF FEBRUARY 2019, TOOK FOR 7 DAYS
     Route: 048
  4. TECFIDERA [Suspect]
     Active Substance: DIMETHYL FUMARATE
     Dosage: LOWERED DOSE FROM 240 MG TWICE DAILY TO 1-240 MG CAPSULE EVERY OTHER DAY AS OF 3/19 DUE TO REPORT...
     Route: 048
     Dates: start: 201903, end: 20190401
  5. TECFIDERA [Suspect]
     Active Substance: DIMETHYL FUMARATE
     Indication: MULTIPLE SCLEROSIS
     Route: 048
     Dates: start: 20190227, end: 20190305
  6. TOPAMAX [Concomitant]
     Active Substance: TOPIRAMATE
     Route: 065

REACTIONS (12)
  - Retching [Unknown]
  - Nausea [Recovered/Resolved]
  - Abdominal discomfort [Not Recovered/Not Resolved]
  - Rash [Not Recovered/Not Resolved]
  - Vomiting [Recovered/Resolved]
  - Flushing [Recovered/Resolved]
  - Drug intolerance [Unknown]
  - Multiple sclerosis [Unknown]
  - Influenza [Recovered/Resolved]
  - Pruritus [Unknown]
  - Diarrhoea [Recovered/Resolved]
  - Abdominal pain upper [Recovered/Resolved]
